FAERS Safety Report 5514848-3 (Version None)
Quarter: 2007Q4

REPORT INFORMATION
  Report Type: 
  Country: None (occurrence: None)
  Receive Date: 20071113
  Receipt Date: 20071105
  Transmission Date: 20080405
  Serious: Yes (Death)
  Sender: FDA-Public Use
  Company Number: US-ELI_LILLY_AND_COMPANY-US200711000935

PATIENT
  Age: 87 Year
  Sex: Female

DRUGS (2)
  1. HUMAN INSULIN (RDNA ORIGIN) [Suspect]
     Indication: DIABETES MELLITUS
     Dosage: UNK, UNKNOWN
  2. OXYGEN [Concomitant]
     Indication: RESPIRATORY DISORDER
     Dosage: UNK, UNKNOWN

REACTIONS (1)
  - RESPIRATORY DISORDER [None]
